FAERS Safety Report 6119765-6 (Version None)
Quarter: 2009Q1

REPORT INFORMATION
  Report Type: 
  Country: None (occurrence: None)
  Receive Date: 20090311
  Receipt Date: 20090226
  Transmission Date: 20090719
  Serious: Yes (Life-Threatening, Hospitalization)
  Sender: FDA-Public Use
  Company Number: 2009FR0005

PATIENT
  Age: 16 Year
  Sex: Female

DRUGS (1)
  1. ORFADIN [Suspect]
     Indication: TYROSINAEMIA
     Dosage: 0.96 MG/KG ORAL
     Route: 048
     Dates: start: 19930310

REACTIONS (1)
  - CEREBRAL HAEMORRHAGE [None]
